FAERS Safety Report 7896580-4 (Version None)
Quarter: 2011Q4

REPORT INFORMATION
  Report Type: 
  Country: None (occurrence: None)
  Receive Date: 20111107
  Receipt Date: 20111027
  Transmission Date: 20120403
  Serious: Yes (Hospitalization)
  Sender: FDA-Public Use
  Company Number: US-BIOGENIDEC-2011BI013726

PATIENT
  Age: 54 Year
  Sex: Female

DRUGS (9)
  1. VITAMIN D [Concomitant]
     Route: 048
  2. METFORMIN HCL [Concomitant]
     Route: 048
  3. ARMODAFINIL [Concomitant]
     Route: 048
  4. TYSABRI [Suspect]
     Route: 042
     Dates: start: 20080925, end: 20100821
  5. SERTRALINE HYDROCHLORIDE [Concomitant]
     Route: 048
  6. AMBIEN [Concomitant]
     Route: 048
  7. TYSABRI [Suspect]
     Indication: MULTIPLE SCLEROSIS
     Route: 042
     Dates: start: 20100924, end: 20110428
  8. LOSARTAN POTASSIUM [Concomitant]
     Route: 048
  9. FLUOXETINE HCL [Concomitant]
     Route: 048

REACTIONS (4)
  - RESPIRATORY FAILURE [None]
  - SEPSIS [None]
  - PNEUMONIA [None]
  - DIARRHOEA [None]
